FAERS Safety Report 9173888 (Version 1)
Quarter: 2013Q1

REPORT INFORMATION
  Report Type: Spontaneous
  Country: BR (occurrence: BR)
  Receive Date: 20130320
  Receipt Date: 20130320
  Transmission Date: 20140127
  Serious: Yes (Hospitalization)
  Sender: FDA-Public Use
  Company Number: BR-SANOFI-AVENTIS-2013SA024453

PATIENT
  Sex: Female
  Weight: .7 kg

DRUGS (1)
  1. CLEXANE [Suspect]
     Indication: MATERNAL EXPOSURE TIMING UNSPECIFIED
     Route: 064
     Dates: start: 2005, end: 2005

REACTIONS (3)
  - Premature baby [Unknown]
  - Exposure during pregnancy [Unknown]
  - Low birth weight baby [Unknown]
